FAERS Safety Report 5491401-1 (Version None)
Quarter: 2007Q4

REPORT INFORMATION
  Report Type: 
  Country: None (occurrence: None)
  Receive Date: 20071018
  Receipt Date: 20071011
  Transmission Date: 20080405
  Serious: Yes (Hospitalization)
  Sender: FDA-Public Use
  Company Number: TAP2007Q01352

PATIENT
  Age: 75 Year
  Sex: Male

DRUGS (10)
  1. LUPRON DEPOT-4 [Suspect]
     Indication: PROSTATE CANCER
     Dosage: 30 MG, 1 IN 4 M
     Dates: start: 20061012
  2. CITALOPRAM HYDROBROMIDE [Concomitant]
  3. ASAPHEN (ACETYLSALICYLIC ACID) [Concomitant]
  4. SYNTHROID [Concomitant]
  5. VITAMIN B (THIAMINE HYDROCHLORIDE) [Concomitant]
  6. MAGNESIUM (MAGNESIUM) [Concomitant]
  7. FORZA-10 (FORZA-10) [Concomitant]
  8. FLOMAX (MORNIFLUMATE) [Concomitant]
  9. CLONAZEPAM [Concomitant]
  10. COMBIVENT (BREVA) [Concomitant]

REACTIONS (8)
  - ANAEMIA [None]
  - ANGINA PECTORIS [None]
  - APHASIA [None]
  - BACK PAIN [None]
  - DYSURIA [None]
  - EPILEPSY [None]
  - MOBILITY DECREASED [None]
  - URINE CALCIUM INCREASED [None]
